FAERS Safety Report 7258183-4 (Version None)
Quarter: 2011Q1

REPORT INFORMATION
  Report Type: 
  Country: None (occurrence: None)
  Receive Date: 20110129
  Receipt Date: 20100727
  Transmission Date: 20110831
  Serious: No
  Sender: FDA-Public Use
  Company Number: US-ABBOTT-10P-163-0660097-00

PATIENT
  Age: 66 Year
  Sex: Female

DRUGS (8)
  1. METHOTREXATE [Concomitant]
     Indication: PRODUCT USED FOR UNKNOWN INDICATION
     Dosage: 6 TABLETS
  2. MOTRIN [Concomitant]
     Indication: RHEUMATOID ARTHRITIS
  3. LEFLUMOMIDE [Concomitant]
     Indication: RHEUMATOID ARTHRITIS
  4. AMLODIPINE [Concomitant]
     Indication: BLOOD PRESSURE INCREASED
  5. ACETAMINOPHEN [Concomitant]
     Indication: PAIN
     Dosage: DG HELP
  6. FOLIC ACID [Concomitant]
     Indication: RHEUMATOID ARTHRITIS
  7. SPIRONOLACTONE [Concomitant]
     Indication: HYPERTENSION
  8. HUMIRA [Suspect]
     Indication: RHEUMATOID ARTHRITIS
     Dates: start: 20100101

REACTIONS (2)
  - ABDOMINAL DISTENSION [None]
  - GASTRIC ULCER [None]
